FAERS Safety Report 22538648 (Version 1)
Quarter: 2023Q2

REPORT INFORMATION
  Report Type: Other
  Country: NL (occurrence: NL)
  Receive Date: 20230609
  Receipt Date: 20230609
  Transmission Date: 20230722
  Serious: No
  Sender: FDA-Public Use
  Company Number: NL-TOLMAR, INC.-23NL040752

PATIENT
  Age: 59 Year
  Sex: Male

DRUGS (7)
  1. ELIGARD [Suspect]
     Active Substance: LEUPROLIDE ACETATE
     Indication: Prostate cancer
     Dosage: 45 MILLIGRAM, Q 6 MONTH
     Route: 058
     Dates: start: 20220509
  2. ELIGARD [Suspect]
     Active Substance: LEUPROLIDE ACETATE
     Dosage: 45 MILLIGRAM, Q 6 MONTH
     Route: 058
     Dates: start: 20221108
  3. ELIGARD [Suspect]
     Active Substance: LEUPROLIDE ACETATE
     Dosage: 45 MILLIGRAM, Q 6 MONTH
     Route: 058
     Dates: start: 20230508
  4. OXYCODONE [Concomitant]
     Active Substance: OXYCODONE
     Indication: Product used for unknown indication
     Dosage: 30 MILLIGRAM, BID
  5. PREDNISONE [Concomitant]
     Active Substance: PREDNISONE
     Indication: Product used for unknown indication
     Dosage: 5 MILLIGRAM, QD
  6. PANTOPRAZOLE [Concomitant]
     Active Substance: PANTOPRAZOLE
     Indication: Product used for unknown indication
     Dosage: 40 MILLIGRAM, QD
  7. CALCIUM\VITAMIN D [Concomitant]
     Active Substance: CALCIUM\VITAMIN D
     Indication: Product used for unknown indication
     Dosage: UNK, QD

REACTIONS (3)
  - Hot flush [Recovering/Resolving]
  - Weight increased [Unknown]
  - Gynaecomastia [Unknown]

NARRATIVE: CASE EVENT DATE: 20220722
